FAERS Safety Report 9390325 (Version 2)
Quarter: 2014Q2

REPORT INFORMATION
  Report Type: Report from Study
  Country: US (occurrence: US)
  Receive Date: 20130709
  Receipt Date: 20140429
  Transmission Date: 20141212
  Serious: Yes (Hospitalization, Other)
  Sender: FDA-Public Use
  Company Number: US-ROCHE-1246074

PATIENT
  Age: 24 Year
  Sex: Male

DRUGS (8)
  1. XOLAIR [Suspect]
     Indication: OBSTRUCTIVE AIRWAYS DISORDER
     Route: 058
  2. XOLAIR [Suspect]
     Indication: ASTHMA
  3. FLONASE [Concomitant]
  4. ZYRTEC [Concomitant]
  5. DULERA [Concomitant]
  6. PREDNISONE [Concomitant]
  7. SERTRALINE [Concomitant]
  8. MOMETASONE [Concomitant]
     Route: 055

REACTIONS (8)
  - Viral upper respiratory tract infection [Recovered/Resolved]
  - Cough [Recovering/Resolving]
  - Asthma [Recovered/Resolved]
  - Cough [Recovered/Resolved]
  - Wheezing [Recovered/Resolved]
  - Chest discomfort [Recovering/Resolving]
  - Throat tightness [Recovering/Resolving]
  - Dyspnoea [Unknown]
